FAERS Safety Report 6574761-X (Version None)
Quarter: 2010Q1

REPORT INFORMATION
  Report Type: 
  Country: None (occurrence: None)
  Receive Date: 20100209
  Receipt Date: 20100128
  Transmission Date: 20100710
  Serious: Yes (Other)
  Sender: FDA-Public Use
  Company Number: PHHY2010DE05196

PATIENT
  Age: 48 Year
  Sex: Male

DRUGS (2)
  1. EXTAVIA [Interacting]
     Dosage: UNK
     Route: 058
  2. GABAPENTIN [Suspect]
     Dosage: 500 MG, UNK

REACTIONS (2)
  - DRUG INTERACTION [None]
  - HYPERKALAEMIA [None]
